FAERS Safety Report 8180680-8 (Version None)
Quarter: 2012Q1

REPORT INFORMATION
  Report Type: 
  Country: None (occurrence: None)
  Receive Date: 20120302
  Receipt Date: 20120229
  Transmission Date: 20120608
  Serious: Yes (Other)
  Sender: FDA-Public Use
  Company Number: US-ABBOTT-12P-163-0910075-00

PATIENT
  Sex: Male
  Weight: 98.064 kg

DRUGS (6)
  1. UNNAMED ANTI-INFLAMMATORY [Concomitant]
     Indication: RHEUMATOID ARTHRITIS
  2. ZANTAC [Concomitant]
     Indication: PROPHYLAXIS
     Dosage: 30 MINUTES BEFORE ANTI-INFLAMMATORY DRUG
  3. MELOXICAM [Concomitant]
     Indication: RHEUMATOID ARTHRITIS
  4. OXYCODONE HCL [Concomitant]
     Indication: PAIN
     Dosage: PRN, SELDOM USED
  5. ZANTAC [Concomitant]
     Indication: GASTRIC DISORDER
  6. HUMIRA [Suspect]
     Indication: RHEUMATOID ARTHRITIS
     Dates: start: 20120201

REACTIONS (2)
  - VISION BLURRED [None]
  - VISUAL IMPAIRMENT [None]
